FAERS Safety Report 5257279-6 (Version None)
Quarter: 2007Q1

REPORT INFORMATION
  Report Type: 
  Country: None (occurrence: None)
  Receive Date: 20070302
  Receipt Date: 20070221
  Transmission Date: 20070707
  Serious: Yes (Other)
  Sender: FDA-Public Use
  Company Number: 2007SP003469

PATIENT
  Age: 67 Year
  Sex: Male
  Weight: 49 kg

DRUGS (4)
  1. TEMODAL [Suspect]
     Indication: CENTRAL NERVOUS SYSTEM LYMPHOMA
     Dosage: 150 MG/M2; QD; PO
     Route: 048
     Dates: start: 20070212, end: 20070216
  2. METHOTREXATE [Concomitant]
  3. NATULAN [Concomitant]
  4. CORTICOSTEROIDS [Concomitant]

REACTIONS (5)
  - BURNING SENSATION [None]
  - PETECHIAE [None]
  - PURPURA [None]
  - RASH GENERALISED [None]
  - VASCULITIS [None]
